FAERS Safety Report 5541656-X (Version None)
Quarter: 2007Q4

REPORT INFORMATION
  Report Type: 
  Country: None (occurrence: None)
  Receive Date: 20071210
  Receipt Date: 20071126
  Transmission Date: 20080405
  Serious: Yes (Hospitalization, Other)
  Sender: FDA-Public Use
  Company Number: FR-AMGEN-UK230816

PATIENT
  Sex: Female

DRUGS (17)
  1. MIMPARA [Suspect]
     Indication: HYPERPARATHYROIDISM SECONDARY
     Route: 048
     Dates: start: 20050623
  2. FORLAX [Concomitant]
     Route: 048
  3. PLAVIX [Concomitant]
     Route: 048
  4. ASPEGIC 1000 [Concomitant]
     Route: 048
  5. LASIX [Concomitant]
     Route: 048
  6. ISOPTIN [Concomitant]
     Route: 048
  7. SIBELIUM [Concomitant]
     Route: 048
  8. IKOREL [Concomitant]
     Route: 065
  9. OGAST [Concomitant]
     Route: 048
  10. SIMVASTATIN [Concomitant]
     Route: 048
  11. PROPOFAN [Concomitant]
     Route: 048
  12. KAYEXALATE [Concomitant]
     Route: 048
  13. CALCIUM [Concomitant]
     Route: 048
  14. DEDROGYL [Concomitant]
     Route: 048
  15. BEPANTHEN [Concomitant]
     Route: 042
  16. BIOTIN [Concomitant]
     Route: 042
  17. ARANESP [Concomitant]
     Route: 042

REACTIONS (9)
  - ASTHENIA [None]
  - DEPRESSED LEVEL OF CONSCIOUSNESS [None]
  - FATIGUE [None]
  - GRAND MAL CONVULSION [None]
  - HYPERTENSION [None]
  - LOSS OF CONSCIOUSNESS [None]
  - MALAISE [None]
  - PULMONARY OEDEMA [None]
  - TACHYPNOEA [None]
